FAERS Safety Report 8298100-1 (Version None)
Quarter: 2012Q2

REPORT INFORMATION
  Report Type: 
  Country: None (occurrence: None)
  Receive Date: 20120419
  Receipt Date: 20120410
  Transmission Date: 20120825
  Serious: Yes (Hospitalization, Other)
  Sender: FDA-Public Use
  Company Number: AR-ROCHE-1030874

PATIENT
  Sex: Female

DRUGS (3)
  1. XOLAIR [Suspect]
     Indication: ASTHMA
     Dates: start: 20110430
  2. XOLAIR [Suspect]
  3. XOLAIR [Suspect]
     Dates: start: 20111101, end: 20111207

REACTIONS (2)
  - PNEUMONIA [None]
  - ASTHMATIC CRISIS [None]
